FAERS Safety Report 16451622 (Version 1)
Quarter: 2019Q2

REPORT INFORMATION
  Report Type: Spontaneous
  Country: US (occurrence: US)
  Receive Date: 20190619
  Receipt Date: 20190619
  Transmission Date: 20190711
  Serious: No
  Sender: FDA-Public Use
  Company Number: US-ALLERGAN-1906036US

PATIENT
  Age: 45 Year
  Sex: Female

DRUGS (3)
  1. VITAMIN SUPPLEMENTS [Concomitant]
     Active Substance: VITAMINS
     Route: 048
  2. LO LOESTRIN FE [Suspect]
     Active Substance: ETHINYL ESTRADIOL\NORETHINDRONE ACETATE
     Indication: UTERINE LEIOMYOMA
  3. LO LOESTRIN FE [Suspect]
     Active Substance: ETHINYL ESTRADIOL\NORETHINDRONE ACETATE
     Indication: MENORRHAGIA
     Dosage: 1 DF, QD
     Route: 048

REACTIONS (4)
  - Vaginal haemorrhage [Recovered/Resolved]
  - Off label use [Unknown]
  - Amenorrhoea [Not Recovered/Not Resolved]
  - Headache [Recovered/Resolved]

NARRATIVE: CASE EVENT DATE: 201902
